FAERS Safety Report 13832895 (Version 2)
Quarter: 2017Q3

REPORT INFORMATION
  Report Type: Spontaneous
  Country: US (occurrence: US)
  Receive Date: 20170804
  Receipt Date: 20170817
  Transmission Date: 20171127
  Serious: No
  Sender: FDA-Public Use
  Company Number: US-CELGENEUS-USA-20170708878

PATIENT
  Age: 63 Year
  Sex: Female

DRUGS (6)
  1. TACLONEX SOLUTION [Concomitant]
     Indication: PSORIASIS
     Route: 065
     Dates: start: 20141123
  2. TOPICORT SPRAY [Concomitant]
     Indication: PSORIASIS
     Dosage: QD + BID
     Route: 065
     Dates: start: 20161019
  3. FLUOCINONIDE SOLUTION [Concomitant]
     Indication: PSORIASIS
     Route: 065
  4. HYDROCORTISONE BUTYRATE. [Concomitant]
     Active Substance: HYDROCORTISONE BUTYRATE
     Indication: PSORIASIS
     Route: 065
     Dates: start: 20170427
  5. OTEZLA [Suspect]
     Active Substance: APREMILAST
     Indication: PSORIATIC ARTHROPATHY
     Dosage: 60 MILLIGRAM
     Route: 048
     Dates: start: 20160606
  6. TAZORAC [Concomitant]
     Active Substance: TAZAROTENE
     Indication: PSORIASIS
     Route: 065
     Dates: start: 20170223

REACTIONS (2)
  - Discomfort [Not Recovered/Not Resolved]
  - Rash [Not Recovered/Not Resolved]

NARRATIVE: CASE EVENT DATE: 201706
